FAERS Safety Report 5892633-0 (Version None)
Quarter: 2008Q3

REPORT INFORMATION
  Report Type: 
  Country: None (occurrence: None)
  Receive Date: 20080923
  Receipt Date: 20070530
  Transmission Date: 20090109
  Serious: Yes (Other)
  Sender: FDA-Public Use
  Company Number: US-ASTRAZENECA-2006UW08214

PATIENT
  Age: 32 Year
  Sex: Female
  Weight: 84.8 kg

DRUGS (19)
  1. SEROQUEL [Suspect]
     Indication: GENERALISED ANXIETY DISORDER
     Route: 048
     Dates: start: 20050321, end: 20050501
  2. SEROQUEL [Suspect]
     Indication: PANIC ATTACK
     Route: 048
     Dates: start: 20050321, end: 20050501
  3. SEROQUEL [Suspect]
     Indication: INSOMNIA
     Route: 048
     Dates: start: 20050321, end: 20050501
  4. LISINOPRIL [Concomitant]
     Dates: start: 20020101
  5. SOMA [Concomitant]
     Dates: start: 20030101
  6. PREVACID [Concomitant]
  7. TRAZODONE HCL [Concomitant]
     Dates: start: 20050101
  8. ZOLOFT [Concomitant]
     Dosage: 50MG-100MG
  9. AMBIEN CR [Concomitant]
  10. VISTARIL [Concomitant]
     Dates: start: 20060703
  11. REMERON [Concomitant]
     Dates: start: 20060703
  12. PAXIL [Concomitant]
  13. EFFEXOR [Concomitant]
     Dates: start: 20051212
  14. LEXAPRO [Concomitant]
     Dates: start: 20060429
  15. HYDROCODONE BITARTRATE [Concomitant]
     Dosage: 7.5/750MG
  16. LORTAB [Concomitant]
  17. NEURONTIN [Concomitant]
  18. PREDNISONE TAB [Concomitant]
  19. KLONOPIN [Concomitant]
     Dosage: 0.5MG TO 2MG
     Dates: start: 20030101

REACTIONS (17)
  - AUTONOMIC NEUROPATHY [None]
  - BACK PAIN [None]
  - CHEST PAIN [None]
  - DIABETIC COMA [None]
  - DIARRHOEA [None]
  - DYSPNOEA EXERTIONAL [None]
  - GASTRITIS [None]
  - HAEMORRHAGIC OVARIAN CYST [None]
  - HEADACHE [None]
  - LIVER DISORDER [None]
  - NECK PAIN [None]
  - NEUROPATHY PERIPHERAL [None]
  - OEDEMA PERIPHERAL [None]
  - PNEUMOBILIA [None]
  - PYELONEPHRITIS [None]
  - TYPE 2 DIABETES MELLITUS [None]
  - WEIGHT INCREASED [None]
